FAERS Safety Report 6491351-8 (Version None)
Quarter: 2009Q4

REPORT INFORMATION
  Report Type: 
  Country: None (occurrence: None)
  Receive Date: 20091207
  Receipt Date: 20091127
  Transmission Date: 20100525
  Serious: No
  Sender: FDA-Public Use
  Company Number: TCI2009A04826

PATIENT
  Age: 75 Year
  Sex: Female

DRUGS (6)
  1. ACTOS [Suspect]
     Indication: DIABETES MELLITUS
     Dosage: 15 MG (15 MG, 1 IN 1 D), PER ORAL
     Route: 048
     Dates: start: 20091105, end: 20091105
  2. CANDESARTAN CILEXETIL [Concomitant]
  3. AMARXL (GLIMEPIRIDE) [Concomitant]
  4. ATELEC (CILNIDIPINE) [Concomitant]
  5. LIPITOR [Concomitant]
  6. FAMOTIDINE [Concomitant]

REACTIONS (2)
  - CONVULSION [None]
  - TREMOR [None]
